FAERS Safety Report 20394939 (Version 1)
Quarter: 2022Q1

REPORT INFORMATION
  Report Type: Spontaneous
  Country: AU (occurrence: AU)
  Receive Date: 20220130
  Receipt Date: 20220130
  Transmission Date: 20220424
  Serious: Yes (Death, Other)
  Sender: FDA-Public Use
  Company Number: AU-JAZZ-2021-AU-002689

PATIENT
  Age: 58 Year
  Sex: Female

DRUGS (1)
  1. ZEPZELCA [Suspect]
     Active Substance: LURBINECTEDIN
     Indication: Neoplasm malignant
     Dosage: 5 CYCLES
     Route: 065
     Dates: start: 20200722, end: 20201014

REACTIONS (1)
  - Death [Fatal]

NARRATIVE: CASE EVENT DATE: 20201202
